FAERS Safety Report 19066404 (Version 1)
Quarter: 2021Q1

REPORT INFORMATION
  Report Type: Spontaneous
  Country: FR (occurrence: FR)
  Receive Date: 20210328
  Receipt Date: 20210328
  Transmission Date: 20210420
  Serious: Yes (Life-Threatening)
  Sender: FDA-Public Use
  Company Number: FR-TEVA-2021-FR-1892798

PATIENT
  Age: 57 Year
  Sex: Female
  Weight: 50.9 kg

DRUGS (14)
  1. FLUOXETINE (CHLORHYDRATE DE) [Suspect]
     Active Substance: FLUOXETINE HYDROCHLORIDE
     Indication: DEPRESSION
     Dosage: 1 DF
     Route: 048
     Dates: end: 20210212
  2. MOVICOL [Suspect]
     Active Substance: POLYETHYLENE GLYCOL 3350\POTASSIUM CHLORIDE\SODIUM BICARBONATE\SODIUM CHLORIDE
     Indication: PRODUCT USED FOR UNKNOWN INDICATION
     Dosage: 4 DF
     Route: 048
     Dates: end: 20210112
  3. ZOPICLONE [Suspect]
     Active Substance: ZOPICLONE
     Indication: INSOMNIA
     Dosage: 1 DF
     Route: 048
     Dates: end: 20210212
  4. CALCIDOSE VITAMINE D, POUDRE ORALE EN SACHET?DOSE [Suspect]
     Active Substance: CALCIUM\CHOLECALCIFEROL
     Indication: PRODUCT USED FOR UNKNOWN INDICATION
     Dosage: ORAL POWDER IN SACHET?DOSE , 1 DF
     Route: 048
     Dates: end: 20210212
  5. TRANXENE [Suspect]
     Active Substance: CLORAZEPATE DIPOTASSIUM
     Indication: PERSONALITY DISORDER
     Dosage: 4 DF
     Route: 048
     Dates: end: 20210212
  6. THERALENE [Suspect]
     Active Substance: TRIMEPRAZINE
     Indication: PERSONALITY DISORDER
     Dosage: 5 MG
     Route: 048
     Dates: end: 20210212
  7. DIFFU K [Suspect]
     Active Substance: POTASSIUM CHLORIDE
     Indication: PRODUCT USED FOR UNKNOWN INDICATION
     Dosage: 1 DF
     Route: 048
     Dates: end: 20210212
  8. NUCALA [Concomitant]
     Active Substance: MEPOLIZUMAB
  9. PREDNISONE. [Suspect]
     Active Substance: PREDNISONE
     Indication: ASTHMA
     Dosage: 4 MG
     Route: 048
     Dates: start: 20210210, end: 20210212
  10. CLOMIPRAMINE (CHLORHYDRATE DE) [Suspect]
     Active Substance: CLOMIPRAMINE HYDROCHLORIDE
     Indication: PERSONALITY DISORDER
     Dosage: 2 DF
     Route: 048
     Dates: end: 20210212
  11. FORMOTEROL DIHYDRATE (FUMARATE DE) [Suspect]
     Active Substance: FORMOTEROL
     Indication: ASTHMA
     Dosage: 2 DF
     Route: 002
     Dates: start: 2019, end: 20210212
  12. COMIRNATY [Suspect]
     Active Substance: TOZINAMERAN
     Indication: COVID-19 IMMUNISATION
     Dosage: LEFT DELTOID , 1 DF
     Route: 030
     Dates: start: 20210211, end: 20210211
  13. BECLOSPRAY [Suspect]
     Active Substance: BECLOMETHASONE DIPROPIONATE
     Indication: ASTHMA
     Dosage: 4 DF
     Route: 002
     Dates: start: 2019, end: 20210212
  14. LOXAPAC 25 MG, COMPRIME PELLICULE [Suspect]
     Active Substance: LOXAPINE SUCCINATE
     Indication: PERSONALITY DISORDER
     Dosage: 3 DF
     Route: 048
     Dates: end: 20210212

REACTIONS (4)
  - Cardio-respiratory arrest [Recovered/Resolved]
  - Pneumonia aspiration [Recovered/Resolved]
  - Rebound effect [Recovered/Resolved]
  - Bronchospasm [Recovered/Resolved]

NARRATIVE: CASE EVENT DATE: 20210211
